FAERS Safety Report 19798356 (Version 1)
Quarter: 2021Q3

REPORT INFORMATION
  Report Type: Spontaneous
  Country: US (occurrence: US)
  Receive Date: 20210907
  Receipt Date: 20210907
  Transmission Date: 20211014
  Serious: No
  Sender: FDA-Public Use
  Company Number: None

PATIENT
  Age: 58 Year
  Sex: Female
  Weight: 58.5 kg

DRUGS (8)
  1. IMVEXXY [Suspect]
     Active Substance: ESTRADIOL
     Indication: VULVOVAGINAL DRYNESS
     Dosage: ?          QUANTITY:1 INSERT;OTHER FREQUENCY:TWICE WEEKLY;?
     Route: 067
     Dates: start: 20210318, end: 20210828
  2. COLLAGEN [Concomitant]
     Active Substance: COLLAGEN
  3. VITAMINS [Concomitant]
     Active Substance: VITAMINS
  4. IBUPROFEN. [Concomitant]
     Active Substance: IBUPROFEN
  5. HIGH BLOOD PRESSURE MEDICATION [Concomitant]
     Active Substance: UNSPECIFIED INGREDIENT
  6. MEDICAL MARIJUANA [Concomitant]
     Active Substance: CANNABIS SATIVA SUBSP. INDICA TOP
  7. CBD OIL [Concomitant]
     Active Substance: CANNABIDIOL\HERBALS
  8. ACETAMINOPHEN. [Concomitant]
     Active Substance: ACETAMINOPHEN

REACTIONS (1)
  - Back pain [None]

NARRATIVE: CASE EVENT DATE: 20210518
